FAERS Safety Report 17798697 (Version 2)
Quarter: 2020Q2

REPORT INFORMATION
  Report Type: Spontaneous
  Country: DE (occurrence: DE)
  Receive Date: 20200518
  Receipt Date: 20200609
  Transmission Date: 20200714
  Serious: Yes (Hospitalization, Other)
  Sender: FDA-Public Use
  Company Number: NVSC2020DE131731

PATIENT
  Age: 39 Year
  Sex: Female
  Weight: 54 kg

DRUGS (5)
  1. LONQUEX [Suspect]
     Active Substance: LIPEGFILGRASTIM
     Indication: BREAST CANCER
     Dosage: 6 MG (D2 DATE OF LAST DOSE PRIOR TO SAE ON 20 OCT 2016)
     Route: 058
     Dates: start: 20160617
  2. DOCETAXEL. [Suspect]
     Active Substance: DOCETAXEL
     Indication: HER2 POSITIVE BREAST CANCER
     Dosage: 75 MG/M2 FOR 21 DAYS (DATE OF LAST DOSE PRIOR TO SAE: 09 SEP 2016DATE OF LAST DOSE PRIOR TO SAE ON 2
     Route: 042
     Dates: start: 20160527
  3. TRASTUZUMAB. [Suspect]
     Active Substance: TRASTUZUMAB
     Indication: HER2 POSITIVE BREAST CANCER
     Dosage: 6 MG/KG FOR 21 DAYS (DATE OF LAST DOSE PRIOR TO SAE: 09/SEP/2016DATE OF LAST DOSE PRIOR TO EVENT SEC
     Route: 042
     Dates: start: 20160527
  4. PERTUZUMAB. [Suspect]
     Active Substance: PERTUZUMAB
     Indication: HER2 POSITIVE BREAST CANCER
     Dosage: DATE OF LAST DOSE PRIOR TO SAE: 09 SEP 2016 DATE OF LAST DOSE PRIOR TO EVENT SECOND OCCURENCE OF ANE
     Route: 042
     Dates: start: 20160527
  5. PERTUZUMAB. [Suspect]
     Active Substance: PERTUZUMAB
     Dosage: 420 MG
     Route: 042
     Dates: start: 20161214

REACTIONS (24)
  - Swelling [Unknown]
  - Decreased appetite [Recovered/Resolved]
  - Anal fissure [Recovered/Resolved]
  - Diarrhoea [Recovered/Resolved]
  - Post-traumatic pain [Not Recovered/Not Resolved]
  - Vascular device infection [Unknown]
  - Abdominal pain [Recovered/Resolved]
  - Fatigue [Recovered/Resolved with Sequelae]
  - Hot flush [Recovered/Resolved]
  - Vaginal infection [Recovered/Resolved with Sequelae]
  - Alopecia [Recovered/Resolved]
  - Polyneuropathy [Recovered/Resolved]
  - Epistaxis [Recovered/Resolved]
  - Dizziness [Recovered/Resolved with Sequelae]
  - Anaemia [Recovered/Resolved]
  - Neutropenia [Recovered/Resolved]
  - Panic attack [Recovered/Resolved]
  - Haematoma [Recovered/Resolved]
  - Hypokinesia [Recovered/Resolved]
  - Pain [Unknown]
  - Paraesthesia [Recovered/Resolved]
  - Nail toxicity [Recovered/Resolved]
  - Tinnitus [Recovered/Resolved]
  - Dyspnoea [Recovered/Resolved with Sequelae]

NARRATIVE: CASE EVENT DATE: 20160527
